FAERS Safety Report 9718850 (Version 1)
Quarter: 2013Q4

REPORT INFORMATION
  Report Type: Spontaneous
  Country: US (occurrence: US)
  Receive Date: 20131127
  Receipt Date: 20131127
  Transmission Date: 20140711
  Serious: Yes (Hospitalization, Other)
  Sender: FDA-Public Use
  Company Number: US-PFIZER INC-2013335589

PATIENT
  Age: 49 Year
  Sex: Male

DRUGS (4)
  1. CLINDAMYCIN PHOSPHATE [Suspect]
     Indication: COMMINUTED FRACTURE
     Dosage: 600 MG, Q6H
     Route: 042
  2. CLINDAMYCIN PHOSPHATE [Suspect]
     Indication: INFECTION PROPHYLAXIS
  3. GENTAMYCIN [Concomitant]
     Indication: INFECTION PROPHYLAXIS
     Dosage: 150 MG, Q8HRS
     Route: 042
  4. GENTAMYCIN [Concomitant]
     Indication: COMMINUTED FRACTURE

REACTIONS (1)
  - Megacolon [Unknown]
